FAERS Safety Report 18511517 (Version 5)
Quarter: 2021Q1

REPORT INFORMATION
  Report Type: Report from Study
  Country: None (occurrence: JP)
  Receive Date: 20201117
  Receipt Date: 20210211
  Transmission Date: 20210419
  Serious: Yes (Hospitalization)
  Sender: FDA-Public Use
  Company Number: JP-ABBVIE-20K-087-3646642-00

PATIENT
  Age: 83 Year
  Sex: Male
  Weight: 47.2 kg

DRUGS (15)
  1. VENCLEXTA [Suspect]
     Active Substance: VENETOCLAX
     Route: 048
     Dates: start: 20201022
  2. RITUXIMAB RECOMBINANT [Concomitant]
     Active Substance: RITUXIMAB
     Indication: B-CELL SMALL LYMPHOCYTIC LYMPHOMA
     Route: 065
     Dates: end: 20200408
  3. RITUXIMAB RECOMBINANT [Concomitant]
     Active Substance: RITUXIMAB
     Route: 065
     Dates: start: 20201222
  4. VENCLEXTA [Suspect]
     Active Substance: VENETOCLAX
     Route: 048
     Dates: start: 20200831, end: 20200906
  5. VENCLEXTA [Suspect]
     Active Substance: VENETOCLAX
     Route: 048
     Dates: start: 20200910, end: 20200924
  6. SULFAMETHOXAZOLE AND TRIMETHOPRIM [Concomitant]
     Active Substance: SULFAMETHOXAZOLE\TRIMETHOPRIM
     Indication: INFECTION PROPHYLAXIS
     Route: 065
  7. RITUXIMAB RECOMBINANT [Concomitant]
     Active Substance: RITUXIMAB
     Route: 065
     Dates: start: 20201012, end: 2020
  8. VENCLEXTA [Suspect]
     Active Substance: VENETOCLAX
     Route: 048
     Dates: start: 20200811, end: 202008
  9. VENCLEXTA [Suspect]
     Active Substance: VENETOCLAX
     Route: 048
     Dates: start: 20200818, end: 20200823
  10. FILGRASTIM [Suspect]
     Active Substance: FILGRASTIM
     Indication: NEUTROPHIL COUNT DECREASED
     Route: 065
  11. RITUXIMAB RECOMBINANT [Concomitant]
     Active Substance: RITUXIMAB
     Route: 065
     Dates: start: 20210126
  12. FEBUXOSTAT. [Concomitant]
     Active Substance: FEBUXOSTAT
     Indication: HYPERURICAEMIA
  13. VENCLEXTA [Suspect]
     Active Substance: VENETOCLAX
     Indication: B-CELL SMALL LYMPHOCYTIC LYMPHOMA RECURRENT
     Route: 048
     Dates: start: 20200804, end: 202008
  14. VENCLEXTA [Suspect]
     Active Substance: VENETOCLAX
     Route: 048
     Dates: start: 20201013, end: 202010
  15. ACYCLOVIR. [Concomitant]
     Active Substance: ACYCLOVIR
     Indication: INFECTION PROPHYLAXIS

REACTIONS (7)
  - Pneumonia [Recovering/Resolving]
  - Hepatic function abnormal [Recovering/Resolving]
  - Neutrophil count decreased [Recovering/Resolving]
  - Tumour lysis syndrome [Recovered/Resolved]
  - Pseudarthrosis [Recovering/Resolving]
  - Anaemia [Recovering/Resolving]
  - Neutrophil count decreased [Recovered/Resolved]

NARRATIVE: CASE EVENT DATE: 20200805
